FAERS Safety Report 8360499 (Version 2)
Quarter: 2013Q1

REPORT INFORMATION
  Report Type: Report from Study
  Country: US (occurrence: US)
  Receive Date: 20120128
  Receipt Date: 20130129
  Transmission Date: 20140127
  Serious: No
  Sender: FDA-Public Use
  Company Number: US-ABBOTT-11P-163-0847698-00

PATIENT
  Age: 33 None
  Sex: Male
  Weight: 99.88 kg

DRUGS (9)
  1. HUMIRA 40 MG/ 0.8 ML PRE-FILLED SYRINGE [Suspect]
     Indication: PSORIASIS
     Dosage: AS NEEDED; EVERY 2-4 WEEKS AT PRESENT
  2. VITAMINS [Concomitant]
     Indication: VITAMIN SUPPLEMENTATION
  3. PHILLIPS COLON HEALTH [Concomitant]
     Indication: IMMUNE SYSTEM DISORDER
  4. DTP VACCINE [Concomitant]
     Indication: PRODUCT USED FOR UNKNOWN INDICATION
  5. PROBIOTICS [Concomitant]
     Indication: PRODUCT USED FOR UNKNOWN INDICATION
  6. BUSPAR [Concomitant]
     Indication: ANXIETY
  7. CRESTOR [Concomitant]
     Indication: LOW DENSITY LIPOPROTEIN INCREASED
  8. STELARA [Concomitant]
     Indication: PSORIASIS
  9. UNNAMED MEDICATION [Concomitant]
     Indication: DEPRESSION

REACTIONS (17)
  - Feeling abnormal [Recovering/Resolving]
  - Dyspnoea [Recovering/Resolving]
  - Chest discomfort [Recovering/Resolving]
  - Pain in jaw [Recovering/Resolving]
  - Headache [Recovering/Resolving]
  - Feeling abnormal [Recovering/Resolving]
  - Alopecia [Not Recovered/Not Resolved]
  - Dizziness [Not Recovered/Not Resolved]
  - Vision blurred [Not Recovered/Not Resolved]
  - Weight increased [Not Recovered/Not Resolved]
  - Chest discomfort [Not Recovered/Not Resolved]
  - Psoriasis [Not Recovered/Not Resolved]
  - Skin fissures [Not Recovered/Not Resolved]
  - Psoriasis [Not Recovered/Not Resolved]
  - Psoriasis [Not Recovered/Not Resolved]
  - Hypoaesthesia [Recovered/Resolved]
  - Sensation of heaviness [Recovered/Resolved]
